FAERS Safety Report 8395843-6 (Version None)
Quarter: 2012Q2

REPORT INFORMATION
  Report Type: 
  Country: None (occurrence: None)
  Receive Date: 20120530
  Receipt Date: 20120523
  Transmission Date: 20120825
  Serious: No
  Sender: FDA-Public Use
  Company Number: US-TEVA-329529USA

PATIENT
  Sex: Female
  Weight: 67.192 kg

DRUGS (5)
  1. AZILECT [Suspect]
     Indication: PARKINSON'S DISEASE
     Dosage: 1 MILLIGRAM;
     Route: 048
     Dates: start: 20120118, end: 20120410
  2. WARFARIN SODIUM [Concomitant]
     Indication: ANTICOAGULANT THERAPY
     Dosage: 3.5 MILLIGRAM;
     Route: 048
  3. LIPITOR [Concomitant]
     Indication: HYPERCHOLESTEROLAEMIA
     Dosage: 10 MILLIGRAM;
     Route: 048
  4. SINEMET [Concomitant]
  5. DIGOXIN [Concomitant]
     Indication: ATRIAL FIBRILLATION
     Dosage: .125 MILLICURIES;
     Route: 048

REACTIONS (4)
  - HYPOTENSION [None]
  - ALOPECIA [None]
  - WEIGHT DECREASED [None]
  - DIZZINESS [None]
